FAERS Safety Report 9210210 (Version 3)
Quarter: 2014Q2

REPORT INFORMATION
  Report Type: Spontaneous
  Country: NZ (occurrence: NZ)
  Receive Date: 20130404
  Receipt Date: 20140611
  Transmission Date: 20141212
  Serious: Yes (Other)
  Sender: FDA-Public Use
  Company Number: NZ-ROCHE-1210253

PATIENT
  Sex: Female
  Weight: 60 kg

DRUGS (3)
  1. PEG-INTERFERON ALFA 2A [Suspect]
     Indication: HEPATITIS C
     Route: 058
     Dates: start: 201209, end: 201308
  2. RIBAVIRIN [Suspect]
     Indication: HEPATITIS C
     Route: 048
     Dates: start: 201209, end: 201308
  3. RIBAVIRIN [Suspect]
     Route: 048

REACTIONS (6)
  - Otitis media [Recovered/Resolved]
  - Conductive deafness [Recovering/Resolving]
  - Deafness neurosensory [Not Recovered/Not Resolved]
  - Tinnitus [Unknown]
  - Tympanic membrane perforation [Unknown]
  - Otorrhoea [Recovered/Resolved]
